FAERS Safety Report 20245176 (Version 4)
Quarter: 2022Q1

REPORT INFORMATION
  Report Type: Spontaneous
  Country: CA (occurrence: CA)
  Receive Date: 20211229
  Receipt Date: 20220228
  Transmission Date: 20220424
  Serious: Yes (Other)
  Sender: FDA-Public Use
  Company Number: CA-CELLTRION INC.-2021CA012291

PATIENT

DRUGS (8)
  1. INFLECTRA [Suspect]
     Active Substance: INFLIXIMAB-DYYB
     Indication: Colitis ulcerative
     Dosage: 500 MG, 0, 2, 6, THEN EVERY 8 WEEKS
     Route: 041
     Dates: start: 20210324
  2. INFLECTRA [Suspect]
     Active Substance: INFLIXIMAB-DYYB
     Dosage: 500 MG, 0, 2, 6, THEN EVERY 8 WEEKS
     Route: 041
     Dates: start: 20210406
  3. INFLECTRA [Suspect]
     Active Substance: INFLIXIMAB-DYYB
     Dosage: 500 MG, 0, 2, 6, THEN EVERY 8 WEEKS
     Route: 042
     Dates: start: 20210825
  4. INFLECTRA [Suspect]
     Active Substance: INFLIXIMAB-DYYB
     Dosage: 500 MG, 0, 2, 6, THEN EVERY 8 WEEKS
     Route: 042
     Dates: start: 20211020
  5. INFLECTRA [Suspect]
     Active Substance: INFLIXIMAB-DYYB
     Dosage: 500 MG, 0, 2, 6, THEN EVERY 8 WEEKS
     Route: 042
     Dates: start: 20211215
  6. INFLECTRA [Suspect]
     Active Substance: INFLIXIMAB-DYYB
     Dosage: 500 MG, 0, 2, 6, THEN EVERY 8 WEEKS
     Route: 042
     Dates: start: 20220208, end: 20220208
  7. PREDNISONE [Concomitant]
     Active Substance: PREDNISONE
     Dosage: 40 MG FOR 2 WEEKS THEN TAPER
  8. PREDNISONE [Concomitant]
     Active Substance: PREDNISONE
     Dosage: 25 MG

REACTIONS (9)
  - Pruritus [Recovered/Resolved]
  - Rash [Unknown]
  - Blood pressure fluctuation [Recovered/Resolved]
  - Condition aggravated [Not Recovered/Not Resolved]
  - Urticaria [Recovered/Resolved]
  - Erythema [Unknown]
  - Off label use [Unknown]
  - Intentional product use issue [Unknown]
  - Expired product administered [Unknown]

NARRATIVE: CASE EVENT DATE: 20210825
